FAERS Safety Report 14140359 (Version 1)
Quarter: 2017Q4

REPORT INFORMATION
  Report Type: Spontaneous
  Country: US (occurrence: US)
  Receive Date: 20171030
  Receipt Date: 20171030
  Transmission Date: 20180321
  Serious: No
  Sender: FDA-Public Use
  Company Number: US-TEVA-749762USA

PATIENT
  Sex: Male

DRUGS (1)
  1. GUANFACINE. [Suspect]
     Active Substance: GUANFACINE

REACTIONS (4)
  - Akathisia [Unknown]
  - Adverse event [Unknown]
  - Drug ineffective [Unknown]
  - Attention deficit/hyperactivity disorder [Recovering/Resolving]
